FAERS Safety Report 16692738 (Version 1)
Quarter: 2019Q3

REPORT INFORMATION
  Report Type: Spontaneous
  Country: FR (occurrence: FR)
  Receive Date: 20190812
  Receipt Date: 20190812
  Transmission Date: 20191004
  Serious: Yes (Other)
  Sender: FDA-Public Use
  Company Number: FR-SA-2019SA218533

PATIENT
  Age: 46 Year
  Sex: Female

DRUGS (7)
  1. VITAMINE B1 B6 BAYER [Concomitant]
     Active Substance: PYRIDOXINE HYDROCHLORIDE\THIAMINE HYDROCHLORIDE
  2. ISONIAZID. [Suspect]
     Active Substance: ISONIAZID
     Indication: FEMALE GENITAL TRACT TUBERCULOSIS
     Dosage: UNK
     Route: 048
     Dates: start: 20190417, end: 20190417
  3. RIFAMPICIN [Suspect]
     Active Substance: RIFAMPIN
     Indication: FEMALE GENITAL TRACT TUBERCULOSIS
     Dosage: UNK
     Route: 048
     Dates: start: 20190417, end: 20190417
  4. ETHAMBUTOL [ETHAMBUTOL DIHYDROCHLORIDE] [Suspect]
     Active Substance: ETHAMBUTOL HYDROCHLORIDE
     Indication: FEMALE GENITAL TRACT TUBERCULOSIS
     Dosage: UNK
     Route: 048
     Dates: start: 20190417, end: 20190417
  5. PYRAZINAMIDE. [Suspect]
     Active Substance: PYRAZINAMIDE
     Indication: FEMALE GENITAL TRACT TUBERCULOSIS
     Dosage: UNK
     Route: 048
     Dates: start: 20190417, end: 20190417
  6. VITAMIN D3 [Concomitant]
     Active Substance: CHOLECALCIFEROL
  7. LEVOTHYROX [Concomitant]
     Active Substance: LEVOTHYROXINE

REACTIONS (1)
  - Angioedema [Recovered/Resolved]

NARRATIVE: CASE EVENT DATE: 20190417
